FAERS Safety Report 5828717-2 (Version None)
Quarter: 2008Q3

REPORT INFORMATION
  Report Type: 
  Country: None (occurrence: None)
  Receive Date: 20080729
  Receipt Date: 20080729
  Transmission Date: 20090109
  Serious: Yes (Other)
  Sender: FDA-Public Use
  Company Number: None

PATIENT
  Age: 37 Year
  Sex: Female
  Weight: 61.2356 kg

DRUGS (1)
  1. OLUX [Suspect]
     Indication: SKIN INFLAMMATION
     Dosage: 1 CAPFUL  2 X DAILY CUTANEOUS (DURATION: 4 YRS OFF AND/ON AS NEED --)
     Route: 003

REACTIONS (3)
  - MENORRHAGIA [None]
  - MENSTRUAL DISORDER [None]
  - MUSCLE SPASMS [None]
